FAERS Safety Report 9435072 (Version 2)
Quarter: 2013Q3

REPORT INFORMATION
  Report Type: Spontaneous
  Country: GB (occurrence: GB)
  Receive Date: 20130801
  Receipt Date: 20130808
  Transmission Date: 20140515
  Serious: Yes (Hospitalization)
  Sender: FDA-Public Use
  Company Number: GB-MALLINCKRODT-T201303859

PATIENT
  Age: 47 Year
  Sex: Female

DRUGS (1)
  1. OPTIRAY 300 [Suspect]
     Indication: ANGIOGRAM
     Dosage: 20-30MLS, SINGLE, CT AAA AT 4MLS/S
     Route: 042
     Dates: start: 20130516, end: 20130516

REACTIONS (4)
  - Injection site vesicles [Recovered/Resolved]
  - Injection site swelling [Recovered/Resolved]
  - Injection site extravasation [Recovered/Resolved]
  - Drug administration error [Recovered/Resolved]
